FAERS Safety Report 4890393-3 (Version None)
Quarter: 2005Q4

REPORT INFORMATION
  Report Type: 
  Country: None (occurrence: None)
  Receive Date: 20051220
  Receipt Date: 20051115
  Transmission Date: 20060501
  Serious: Yes (Other)
  Sender: FDA-Public Use
  Company Number: 425285

PATIENT
  Sex: Female

DRUGS (1)
  1. BONIVA (IBANDRONIC ACID) [Suspect]
     Indication: OSTEOPOROSIS

REACTIONS (5)
  - BONE PAIN [None]
  - DYSPEPSIA [None]
  - HEADACHE [None]
  - NECK PAIN [None]
  - PAIN IN EXTREMITY [None]
